FAERS Safety Report 6553168-5 (Version None)
Quarter: 2010Q1

REPORT INFORMATION
  Report Type: 
  Country: None (occurrence: None)
  Receive Date: 20100127
  Receipt Date: 20090224
  Transmission Date: 20100710
  Serious: No
  Sender: FDA-Public Use
  Company Number: A0771164A

PATIENT
  Sex: Female

DRUGS (1)
  1. IMITREX [Suspect]
     Indication: DRUG USE FOR UNKNOWN INDICATION
     Route: 065

REACTIONS (3)
  - BURNING SENSATION [None]
  - DRY MOUTH [None]
  - NAUSEA [None]
